FAERS Safety Report 9166631 (Version 1)
Quarter: 2013Q1

REPORT INFORMATION
  Report Type: Report from Study
  Country: CH (occurrence: CH)
  Receive Date: 20130315
  Receipt Date: 20130315
  Transmission Date: 20140127
  Serious: Yes (Congenital Anomaly, Other)
  Sender: FDA-Public Use
  Company Number: CH-MERCK-1204USA03278B1

PATIENT
  Sex: 0

DRUGS (6)
  1. ZOCOR [Suspect]
     Route: 064
  2. PRAVASTATIN SODIUM [Suspect]
     Route: 064
  3. ROSUVASTATIN CALCIUM [Suspect]
     Route: 064
  4. FLUVASTATIN SODIUM [Suspect]
     Route: 064
  5. CERIVASTATIN SODIUM [Suspect]
     Route: 064
  6. ATORVASTATIN [Suspect]
     Route: 064

REACTIONS (3)
  - Premature baby [Unknown]
  - Congenital anomaly [Unknown]
  - Foetal exposure during pregnancy [Unknown]
